FAERS Safety Report 4283483-X (Version None)
Quarter: 2004Q1

REPORT INFORMATION
  Report Type: 
  Country: None (occurrence: None)
  Receive Date: 20040115
  Receipt Date: 20031112
  Transmission Date: 20041129
  Serious: Yes (Hospitalization)
  Sender: FDA-Public Use
  Company Number: US-JNJFOC-20031102322

PATIENT
  Sex: Female

DRUGS (1)
  1. DOXIL [Suspect]
     Indication: UTERINE CANCER
     Dosage: , 1 IN 4 WEEK, INTRAVENOUS
     Route: 042
     Dates: start: 20030714, end: 20030811

REACTIONS (1)
  - MALIGNANT NEOPLASM PROGRESSION [None]
